FAERS Safety Report 4834960-1 (Version None)
Quarter: 2005Q4

REPORT INFORMATION
  Report Type: 
  Country: None (occurrence: None)
  Receive Date: 20051114
  Receipt Date: 20051028
  Transmission Date: 20060501
  Serious: Yes (Life-Threatening, Hospitalization)
  Sender: FDA-Public Use
  Company Number: S05-USA-04098-01

PATIENT
  Age: 44 Year
  Sex: Male
  Weight: 79.3795 kg

DRUGS (13)
  1. LEXAPRO [Suspect]
     Indication: PAIN MANAGEMENT
     Dosage: 20 MG QD PO
     Route: 048
     Dates: start: 20050101, end: 20050101
  2. LEXAPRO [Suspect]
     Indication: PAIN MANAGEMENT
     Dosage: 10 MG QD PO
     Route: 048
     Dates: start: 20050101, end: 20050101
  3. PEG-INTRON [Suspect]
     Indication: HEPATITIS B
     Dosage: 50 MCG SC
     Route: 058
     Dates: start: 20050621, end: 20050801
  4. PEG-INTRON [Suspect]
     Indication: HEPATITIS C
     Dosage: 50 MCG SC
     Route: 058
     Dates: start: 20050621, end: 20050801
  5. REBETOL [Suspect]
     Indication: HEPATITIS B
     Dosage: 600 MG PO
     Route: 048
     Dates: start: 20050621, end: 20050801
  6. REBETOL [Suspect]
     Indication: HEPATITIS C
     Dosage: 600 MG PO
     Route: 048
     Dates: start: 20050621, end: 20050801
  7. MORPHINE SULFATE [Concomitant]
  8. CLONIDINE [Concomitant]
  9. XANAX [Concomitant]
  10. NEXIUM [Concomitant]
  11. CANNABIS (CANNABIS) [Concomitant]
  12. KLONOPIN [Concomitant]
  13. FENTANYL [Concomitant]

REACTIONS (19)
  - ANAEMIA [None]
  - ASCITES [None]
  - CEREBROVASCULAR ACCIDENT [None]
  - CONVULSION [None]
  - DRUG HYPERSENSITIVITY [None]
  - FALL [None]
  - FOOT FRACTURE [None]
  - HEPATITIS [None]
  - MENTAL DISORDER [None]
  - MYOCARDIAL INFARCTION [None]
  - NEOPLASM MALIGNANT [None]
  - NIGHTMARE [None]
  - OEDEMA PERIPHERAL [None]
  - REFUSAL OF TREATMENT BY PATIENT [None]
  - RENAL DISORDER [None]
  - RENAL FAILURE [None]
  - SLEEP WALKING [None]
  - SPINAL COMPRESSION FRACTURE [None]
  - WEIGHT INCREASED [None]
